FAERS Safety Report 5513550-1 (Version None)
Quarter: 2007Q4

REPORT INFORMATION
  Report Type: 
  Country: None (occurrence: None)
  Receive Date: 20071108
  Receipt Date: 20071024
  Transmission Date: 20080405
  Serious: Yes (Hospitalization)
  Sender: FDA-Public Use
  Company Number: 190010L07JPN

PATIENT
  Age: 33 Year
  Sex: Female

DRUGS (2)
  1. CHORIONIC GONADTROPIN [Suspect]
  2. MENOTROPINS [Suspect]

REACTIONS (7)
  - ABORTION INDUCED [None]
  - DYSPNOEA [None]
  - ECTOPIC PREGNANCY [None]
  - HAEMOGLOBIN DECREASED [None]
  - MULTIPLE PREGNANCY [None]
  - OVARIAN HYPERSTIMULATION SYNDROME [None]
  - PERITONEAL HAEMORRHAGE [None]
